FAERS Safety Report 19942753 (Version 1)
Quarter: 2021Q4

REPORT INFORMATION
  Report Type: Spontaneous
  Country: US (occurrence: US)
  Receive Date: 20211008
  Receipt Date: 20211008
  Transmission Date: 20220303
  Serious: No
  Sender: FDA-Public Use
  Company Number: None

PATIENT
  Age: 30 Year
  Sex: Male

DRUGS (1)
  1. BUPRENORPHINE\NALOXONE [Suspect]
     Active Substance: BUPRENORPHINE\NALOXONE
     Indication: Drug dependence
     Route: 060
     Dates: start: 20210917

REACTIONS (3)
  - Therapeutic response changed [None]
  - Drug withdrawal syndrome [None]
  - Drug level below therapeutic [None]

NARRATIVE: CASE EVENT DATE: 20211008
